FAERS Safety Report 9699211 (Version 2)
Quarter: 2013Q4

REPORT INFORMATION
  Report Type: Spontaneous
  Country: US (occurrence: US)
  Receive Date: 20131120
  Receipt Date: 20131120
  Transmission Date: 20140711
  Serious: No
  Sender: FDA-Public Use
  Company Number: US-GILEAD-2008-0015076

PATIENT
  Age: 53 Year
  Sex: Female
  Weight: 61.69 kg

DRUGS (10)
  1. LETAIRIS [Suspect]
     Indication: PULMONARY ARTERIAL HYPERTENSION
     Route: 048
     Dates: start: 20070812
  2. REMODULIN [Concomitant]
     Indication: PULMONARY ARTERIAL HYPERTENSION
     Dosage: CONTINUOUS
     Route: 042
  3. COUMADIN [Concomitant]
     Indication: ANTICOAGULANT THERAPY
     Route: 048
  4. ATENOLOL [Concomitant]
     Indication: ESSENTIAL HYPERTENSION
     Route: 048
  5. TORSEMIDE [Concomitant]
     Indication: PULMONARY ARTERIAL HYPERTENSION
     Route: 048
  6. SPIRONOLACTONE [Concomitant]
     Indication: PULMONARY ARTERIAL HYPERTENSION
     Route: 048
  7. KCL [Concomitant]
     Indication: SUPPLEMENTATION THERAPY
     Route: 048
  8. LEVOTHYROSINE [Concomitant]
     Indication: HYPOTHYROIDISM
     Route: 048
  9. ZOCOR [Concomitant]
     Indication: HYPERCHOLESTEROLAEMIA
     Route: 048
  10. ALLOPURINOL [Concomitant]
     Indication: GOUT
     Route: 048

REACTIONS (1)
  - Oedema peripheral [Not Recovered/Not Resolved]
